FAERS Safety Report 4854987-3 (Version None)
Quarter: 2005Q4

REPORT INFORMATION
  Report Type: 
  Country: None (occurrence: None)
  Receive Date: 20051214
  Receipt Date: 20051201
  Transmission Date: 20060501
  Serious: Yes (Hospitalization)
  Sender: FDA-Public Use
  Company Number: TAP2005Q02164

PATIENT
  Sex: Female

DRUGS (3)
  1. PREVACID [Suspect]
     Dates: start: 20041201
  2. SYNTHROID [Suspect]
     Dates: start: 20031201
  3. UNSPECIFIED HOMEOPATHIC MEDICINE [Suspect]

REACTIONS (5)
  - ASTHENIA [None]
  - BLOOD MAGNESIUM DECREASED [None]
  - BLOOD POTASSIUM DECREASED [None]
  - BLOOD SODIUM DECREASED [None]
  - COMA [None]
